APPROVED DRUG PRODUCT: MANDOL
Active Ingredient: CEFAMANDOLE NAFATE
Strength: EQ 1GM BASE/VIAL
Dosage Form/Route: INJECTABLE;INJECTION
Application: A062560 | Product #001
Applicant: ELI LILLY AND CO
Approved: Sep 10, 1985 | RLD: No | RS: No | Type: DISCN